FAERS Safety Report 5241951-8 (Version None)
Quarter: 2007Q1

REPORT INFORMATION
  Report Type: 
  Country: None (occurrence: None)
  Receive Date: 20070220
  Receipt Date: 20070215
  Transmission Date: 20070707
  Serious: Yes (Hospitalization)
  Sender: FDA-Public Use
  Company Number: JP-BOEHRINGER INGELHEIM PHARMACEUTICALS, INC.-2006-BP-13033NB

PATIENT
  Sex: Male
  Weight: 47.2 kg

DRUGS (9)
  1. MICARDIS [Suspect]
     Indication: HYPERTENSION
     Route: 048
     Dates: start: 20061021, end: 20061021
  2. PHOSBLOCK [Concomitant]
     Indication: HYPERPHOSPHATAEMIA
     Route: 065
     Dates: start: 20060125
  3. METHYCOOL [Concomitant]
     Indication: NEUROPATHY PERIPHERAL
     Route: 065
     Dates: start: 20060125
  4. ITOROL [Concomitant]
     Indication: ANGINA PECTORIS
     Route: 065
  5. SIGMART [Concomitant]
     Indication: ANGINA PECTORIS
     Route: 065
  6. ALLEGRA [Concomitant]
     Indication: RHINITIS ALLERGIC
     Route: 065
     Dates: start: 20061011
  7. CALTAN (PRECIPITATED CALCIUM CARBONATE) [Concomitant]
     Indication: HYPERPHOSPHATAEMIA
     Route: 065
     Dates: start: 20060222
  8. OPALMON [Concomitant]
     Indication: MITRAL VALVE INCOMPETENCE
     Route: 065
     Dates: start: 20050225
  9. ASPIRIN [Concomitant]
     Indication: ANGINA PECTORIS
     Route: 065
     Dates: start: 20060814

REACTIONS (1)
  - ATRIOVENTRICULAR BLOCK COMPLETE [None]
